FAERS Safety Report 5534050-9 (Version None)
Quarter: 2007Q4

REPORT INFORMATION
  Report Type: 
  Country: None (occurrence: None)
  Receive Date: 20071129
  Receipt Date: 20071129
  Transmission Date: 20080405
  Serious: Yes (Hospitalization)
  Sender: FDA-Public Use
  Company Number: None

PATIENT
  Sex: Female
  Weight: 68.0396 kg

DRUGS (11)
  1. CYCLOPHOSPHAMIDE [Suspect]
     Indication: BREAST CANCER METASTATIC
     Dosage: 50MG, ONCE DAILY, ORAL
     Route: 048
     Dates: start: 20070803, end: 20071108
  2. ZD6474, 100MG TABLETS, ASTRAZENECA [Suspect]
     Indication: BREAST CANCER METASTATIC
     Dosage: 100MG, ONCE DAILY, ORAL
     Route: 048
     Dates: start: 20070803, end: 20071108
  3. METHOTREXATE [Concomitant]
  4. OXYCONTIN [Concomitant]
  5. LEXAPRO [Concomitant]
  6. AMLODIPINE [Concomitant]
  7. LISINOPRIL [Concomitant]
  8. ZEGERID [Concomitant]
  9. MYLANTA [Concomitant]
  10. REMERON [Concomitant]
  11. ATENOLOL [Concomitant]

REACTIONS (9)
  - ABDOMINAL PAIN [None]
  - BILIARY DILATATION [None]
  - CONDITION AGGRAVATED [None]
  - GASTROOESOPHAGEAL REFLUX DISEASE [None]
  - ILL-DEFINED DISORDER [None]
  - INTESTINAL STENOSIS [None]
  - NAUSEA [None]
  - PAIN [None]
  - PROCEDURAL COMPLICATION [None]
